FAERS Safety Report 4267257-1 (Version None)
Quarter: 2004Q1

REPORT INFORMATION
  Report Type: 
  Country: None (occurrence: None)
  Receive Date: 20040107
  Receipt Date: 20031226
  Transmission Date: 20041129
  Serious: Yes (Other)
  Sender: FDA-Public Use
  Company Number: JP-JNJFOC-20031104901

PATIENT
  Age: 75 Year
  Sex: Male
  Weight: 47 kg

DRUGS (6)
  1. LEVOFLOXACIN [Suspect]
     Indication: DRUG USE FOR UNKNOWN INDICATION
     Dosage: 300 MG, ORAL
     Route: 048
     Dates: start: 20030807, end: 20030809
  2. ISONIAZID [Suspect]
     Indication: DRUG USE FOR UNKNOWN INDICATION
     Dosage: ORAL
     Route: 048
     Dates: start: 20030726, end: 20030809
  3. RIFAMPICIN [Suspect]
     Indication: DRUG USE FOR UNKNOWN INDICATION
     Dosage: 450MG, ORAL
     Route: 048
     Dates: start: 20030726, end: 20030809
  4. ETHAMBUTOL HYDROCHLORIDE (ETHAMBUTOL) [Suspect]
     Indication: PULMONARY TUBERCULOSIS
     Dosage: 750 MG, 1 IN 1 DAY
  5. MAGNESIUM OXIDE (MAGNESIUM OXIDE) [Concomitant]
  6. YODEL (SENNA) [Concomitant]

REACTIONS (6)
  - ATYPICAL MYCOBACTERIAL INFECTION [None]
  - BRONCHOPULMONARY ASPERGILLOSIS [None]
  - CATARACT [None]
  - HEPATITIS [None]
  - INTERSTITIAL LUNG DISEASE [None]
  - PYREXIA [None]
